FAERS Safety Report 19668541 (Version 1)
Quarter: 2021Q3

REPORT INFORMATION
  Report Type: Spontaneous
  Country: AT (occurrence: AT)
  Receive Date: 20210806
  Receipt Date: 20210806
  Transmission Date: 20211014
  Serious: Yes (Life-Threatening, Other)
  Sender: FDA-Public Use
  Company Number: AT-PFIZER INC-202100966784

PATIENT
  Age: 63 Year
  Sex: Male
  Weight: 94 kg

DRUGS (7)
  1. BERODUALIN [Concomitant]
     Dosage: UNK (INHALATION)
     Dates: start: 20210715, end: 20210719
  2. CIPRALEX [Concomitant]
     Active Substance: ESCITALOPRAM OXALATE
     Dosage: UNK
     Dates: start: 20210715, end: 20210719
  3. DOMPERIDON [DOMPERIDONE MALEATE] [Concomitant]
     Dosage: UNK
     Dates: start: 20210715, end: 20210719
  4. DIFLUCAN [Suspect]
     Active Substance: FLUCONAZOLE
     Dosage: UNK
     Route: 042
     Dates: start: 20210716, end: 20210717
  5. MOTILIUM [Interacting]
     Active Substance: DOMPERIDONE
     Dosage: UNK
  6. PROPOFOL. [Concomitant]
     Active Substance: PROPOFOL
     Dosage: UNK
     Dates: start: 20210715, end: 20210719
  7. PIRITRAMID HAMELN [Concomitant]
     Dosage: UNK (PERFUSOR 2,4 MG/H)
     Dates: start: 20210715, end: 20210720

REACTIONS (2)
  - Torsade de pointes [Recovered/Resolved]
  - Drug interaction [Recovered/Resolved]

NARRATIVE: CASE EVENT DATE: 20210716
